FAERS Safety Report 7438540-3 (Version None)
Quarter: 2011Q2

REPORT INFORMATION
  Report Type: 
  Country: None (occurrence: None)
  Receive Date: 20110426
  Receipt Date: 20110412
  Transmission Date: 20111010
  Serious: Yes (Other)
  Sender: FDA-Public Use
  Company Number: US-BAYER-2011-032504

PATIENT
  Sex: Female
  Weight: 88.435 kg

DRUGS (7)
  1. FLONASE [Concomitant]
  2. HORMONES NOS [Concomitant]
  3. FLAXSEED OIL [Concomitant]
  4. ASPIRIN [Suspect]
     Indication: ISCHAEMIC HEART DISEASE PROPHYLAXIS
     Dosage: 81 MG, QD
     Route: 048
     Dates: start: 20101201, end: 20110408
  5. CHLORPHENIRAMINE MALEATE [Concomitant]
  6. METOPROLOL [Concomitant]
  7. ALLERGY SHOT [Concomitant]
     Dosage: EVERY 3 WEEKS

REACTIONS (1)
  - SUDDEN HEARING LOSS [None]
